FAERS Safety Report 16623462 (Version 4)
Quarter: 2019Q3

REPORT INFORMATION
  Report Type: Spontaneous
  Country: JP (occurrence: JP)
  Receive Date: 20190724
  Receipt Date: 20190909
  Transmission Date: 20191004
  Serious: Yes (Hospitalization, Other)
  Sender: FDA-Public Use
  Company Number: JP-SA-2019SA196137

PATIENT
  Age: 67 Year
  Sex: Male

DRUGS (17)
  1. ASPIRIN [ACETYLSALICYLIC ACID] [Concomitant]
     Active Substance: ASPIRIN
     Dosage: UNK UNK, UNK
     Route: 065
  2. DIGOXIN. [Concomitant]
     Active Substance: DIGOXIN
     Dosage: UNK UNK, UNK
     Route: 065
  3. CETUXIMAB. [Concomitant]
     Active Substance: CETUXIMAB
     Indication: ADENOCARCINOMA OF COLON
  4. OXALIPLATIN. [Suspect]
     Active Substance: OXALIPLATIN
     Indication: COLON CANCER STAGE IV
  5. FLUOROURACIL. [Suspect]
     Active Substance: FLUOROURACIL
     Indication: COLON CANCER STAGE IV
     Dosage: UNK UNK, QCY
     Route: 065
  6. WARFARIN [Concomitant]
     Active Substance: WARFARIN
     Dosage: UNK UNK, UNK
     Route: 065
  7. LANSOPRAZOLE. [Concomitant]
     Active Substance: LANSOPRAZOLE
     Dosage: UNK UNK, UNK
     Route: 065
  8. DULOXETINE. [Concomitant]
     Active Substance: DULOXETINE
     Dosage: UNK UNK, UNK
     Route: 065
  9. CETUXIMAB. [Concomitant]
     Active Substance: CETUXIMAB
     Indication: RECTAL CANCER STAGE III
  10. CETUXIMAB. [Concomitant]
     Active Substance: CETUXIMAB
     Indication: COLON CANCER STAGE IV
  11. OXALIPLATIN. [Suspect]
     Active Substance: OXALIPLATIN
     Indication: ADENOCARCINOMA OF COLON
     Dosage: UNK UNK, QCY
     Route: 065
  12. LEUCOVORIN [FOLINIC ACID] [Suspect]
     Active Substance: LEUCOVORIN
     Indication: ADENOCARCINOMA OF COLON
     Dosage: UNK UNK, QCY
     Route: 065
  13. BISOPROLOL [Concomitant]
     Active Substance: BISOPROLOL
     Dosage: UNK UNK, UNK
     Route: 065
  14. CETUXIMAB. [Concomitant]
     Active Substance: CETUXIMAB
     Indication: METASTASES TO LIVER
     Dosage: 8 UNK, TOTAL
  15. LEUCOVORIN [FOLINIC ACID] [Suspect]
     Active Substance: LEUCOVORIN
     Indication: COLON CANCER STAGE IV
  16. PROCHLORPERAZINE. [Concomitant]
     Active Substance: PROCHLORPERAZINE
     Dosage: UNK UNK, UNK
     Route: 065
  17. ALPRAZOLAM. [Concomitant]
     Active Substance: ALPRAZOLAM
     Dosage: UNK UNK, UNK
     Route: 065

REACTIONS (16)
  - Pyrexia [Unknown]
  - Anaemia [Recovered/Resolved]
  - Condition aggravated [Recovered/Resolved]
  - Proteinuria [Recovered/Resolved]
  - Acute kidney injury [Recovered/Resolved]
  - Hot flush [Unknown]
  - Tremor [Unknown]
  - Renal tubular necrosis [Recovered/Resolved]
  - Oliguria [Recovered/Resolved]
  - Chills [Unknown]
  - Thrombocytopenia [Recovered/Resolved]
  - Tubulointerstitial nephritis [Recovered/Resolved]
  - Sterile pyuria [Unknown]
  - Renal impairment [Recovered/Resolved]
  - Nephropathy toxic [Recovered/Resolved]
  - Drug hypersensitivity [Unknown]
